FAERS Safety Report 7574538-2 (Version None)
Quarter: 2011Q2

REPORT INFORMATION
  Report Type: 
  Country: None (occurrence: None)
  Receive Date: 20110525
  Receipt Date: 20110214
  Transmission Date: 20111010
  Serious: No
  Sender: FDA-Public Use
  Company Number: 323625

PATIENT
  Sex: Female

DRUGS (1)
  1. VICTOZA [Suspect]
     Indication: PRODUCT USED FOR UNKNOWN INDICATION

REACTIONS (2)
  - INFLUENZA [None]
  - NAUSEA [None]
